FAERS Safety Report 9943222 (Version 2)
Quarter: 2014Q2

REPORT INFORMATION
  Report Type: Spontaneous
  Country: RU (occurrence: RU)
  Receive Date: 20140303
  Receipt Date: 20140401
  Transmission Date: 20141212
  Serious: Yes (Hospitalization, Other)
  Sender: FDA-Public Use
  Company Number: PHHY2014RU025624

PATIENT
  Age: 36 Year
  Sex: Female

DRUGS (2)
  1. GILENYA [Suspect]
     Indication: MULTIPLE SCLEROSIS
     Route: 048
     Dates: start: 20121126
  2. MITOXANTRON [Suspect]
     Dosage: 20 MG, UNK

REACTIONS (25)
  - Rectal adenocarcinoma [Unknown]
  - Angiopathy [Unknown]
  - Lymphadenopathy [Unknown]
  - Red blood cell sedimentation rate increased [Unknown]
  - Neutrophil count increased [Unknown]
  - Basophil count decreased [Unknown]
  - Haemoglobin decreased [Unknown]
  - Venous angioma of brain [Unknown]
  - Lung infiltration [Unknown]
  - Haemoptysis [Unknown]
  - Multiple sclerosis relapse [Unknown]
  - Muscular weakness [Not Recovered/Not Resolved]
  - Gait disturbance [Unknown]
  - Hypotonia [Unknown]
  - Paraesthesia [Unknown]
  - Hyporeflexia [Unknown]
  - Hypoaesthesia [Unknown]
  - Muscle spasticity [Recovering/Resolving]
  - Pain in extremity [Unknown]
  - Hypokinesia [Recovering/Resolving]
  - Ataxia [Recovering/Resolving]
  - Strabismus [Unknown]
  - Tremor [Unknown]
  - Diplopia [Recovering/Resolving]
  - Asthenia [Unknown]
